FAERS Safety Report 6861193-X (Version None)
Quarter: 2010Q3

REPORT INFORMATION
  Report Type: 
  Country: None (occurrence: None)
  Receive Date: 20100720
  Receipt Date: 20100712
  Transmission Date: 20110219
  Serious: Yes (Hospitalization, Other)
  Sender: FDA-Public Use
  Company Number: US-ABBOTT-10P-163-0656901-00

PATIENT
  Sex: Male
  Weight: 86.26 kg

DRUGS (3)
  1. HUMIRA [Suspect]
     Indication: PSORIATIC ARTHROPATHY
     Route: 058
     Dates: start: 20080101, end: 20100401
  2. HUMIRA [Suspect]
     Route: 058
     Dates: start: 20100601
  3. HUMIRA [Suspect]
     Route: 058
     Dates: start: 20080101, end: 20080101

REACTIONS (4)
  - ARTHRALGIA [None]
  - GINGIVAL INFECTION [None]
  - INFECTION [None]
  - MENISCUS LESION [None]
